FAERS Safety Report 16475754 (Version 1)
Quarter: 2019Q2

REPORT INFORMATION
  Report Type: Spontaneous
  Country: FR (occurrence: FR)
  Receive Date: 20190625
  Receipt Date: 20190625
  Transmission Date: 20190711
  Serious: Yes (Other)
  Sender: FDA-Public Use
  Company Number: PHHY2019FR141965

PATIENT
  Age: 72 Year
  Sex: Male

DRUGS (2)
  1. DABRAFENIB [Suspect]
     Active Substance: DABRAFENIB
     Indication: MALIGNANT MELANOMA STAGE IV
     Dosage: UNK
     Route: 065
  2. TRAMETINIB [Suspect]
     Active Substance: TRAMETINIB
     Indication: MALIGNANT MELANOMA STAGE IV
     Dosage: UNK
     Route: 065

REACTIONS (6)
  - Gastritis erosive [Recovered/Resolved]
  - Protein-losing gastroenteropathy [Recovered/Resolved]
  - Rectal ulcer [Recovered/Resolved]
  - Diarrhoea [Recovered/Resolved]
  - Small intestine ulcer [Recovered/Resolved]
  - Aphthous ulcer [Recovered/Resolved]
